FAERS Safety Report 9428336 (Version 1)
Quarter: 2013Q3

REPORT INFORMATION
  Report Type: Spontaneous
  Country: JP (occurrence: JP)
  Receive Date: 20130730
  Receipt Date: 20130730
  Transmission Date: 20140515
  Serious: Yes (Hospitalization)
  Sender: FDA-Public Use
  Company Number: JP-BAYER-2013-087336

PATIENT
  Age: 73 Year
  Sex: Male

DRUGS (2)
  1. BAYASPIRIN [Suspect]
     Dosage: UNK
     Route: 048
     Dates: end: 2012
  2. BAYASPIRIN [Suspect]
     Dosage: UNK
     Route: 048
     Dates: start: 2012

REACTIONS (6)
  - Mallory-Weiss syndrome [Recovering/Resolving]
  - Abdominal pain upper [Recovering/Resolving]
  - Vomiting [Recovering/Resolving]
  - Haematemesis [Recovering/Resolving]
  - Intestinal ischaemia [Recovering/Resolving]
  - Abdominal pain lower [Recovering/Resolving]
